FAERS Safety Report 17030817 (Version 1)
Quarter: 2019Q4

REPORT INFORMATION
  Report Type: Spontaneous
  Country: NL (occurrence: NL)
  Receive Date: 20191114
  Receipt Date: 20191114
  Transmission Date: 20200122
  Serious: Yes (Other)
  Sender: FDA-Public Use
  Company Number: NL-MYLANLABS-2019M1108994

PATIENT
  Age: 77 Year
  Sex: Male
  Weight: 96.5 kg

DRUGS (6)
  1. MESTINON [Concomitant]
     Active Substance: PYRIDOSTIGMINE BROMIDE
     Dosage: P/DAG
  2. SPIRONOLACTON [Concomitant]
     Active Substance: SPIRONOLACTONE
     Dosage: 1X P/DAG
  3. AZATHIOPRINE. [Suspect]
     Active Substance: AZATHIOPRINE
     Indication: PRODUCT USED FOR UNKNOWN INDICATION
     Dosage: 2X P/DAG 50 MG
     Dates: start: 20190403, end: 20190620
  4. PREDNISOLON                        /00016201/ [Concomitant]
     Active Substance: PREDNISOLONE
     Dosage: 1X P/DAG
  5. EUTHYROX [Concomitant]
     Active Substance: LEVOTHYROXINE SODIUM
     Dosage: 1X P/DAG
  6. QUINAPRIL. [Concomitant]
     Active Substance: QUINAPRIL
     Dosage: 1X P/DAG

REACTIONS (8)
  - Dyspnoea [Unknown]
  - Muscle spasms [Unknown]
  - Muscle discomfort [Unknown]
  - General physical health deterioration [Recovered/Resolved with Sequelae]
  - Cough [Unknown]
  - Feeling of body temperature change [Unknown]
  - Tremor [Unknown]
  - Syncope [Unknown]

NARRATIVE: CASE EVENT DATE: 20190407
